FAERS Safety Report 9533716 (Version 2)
Quarter: 2013Q3

REPORT INFORMATION
  Report Type: Spontaneous
  Country: US (occurrence: US)
  Receive Date: 20130918
  Receipt Date: 20130918
  Transmission Date: 20140515
  Serious: No
  Sender: FDA-Public Use
  Company Number: US-PURDUE-USA-2011-0071601

PATIENT
  Age: 62 Year
  Sex: Female
  Weight: 59.86 kg

DRUGS (1)
  1. BUTRANS [Suspect]
     Indication: PAIN
     Dosage: UNK UNK, SEE TEXT

REACTIONS (6)
  - Dysphonia [Unknown]
  - Paraesthesia oral [Unknown]
  - Nausea [Unknown]
  - Headache [Unknown]
  - Dyspnoea [Unknown]
  - Paraesthesia [Unknown]
